FAERS Safety Report 8258396-9 (Version None)
Quarter: 2012Q2

REPORT INFORMATION
  Report Type: 
  Country: None (occurrence: None)
  Receive Date: 20120404
  Receipt Date: 20120328
  Transmission Date: 20120825
  Serious: Yes (Hospitalization)
  Sender: FDA-Public Use
  Company Number: US-NOVOPROD-348337

PATIENT
  Age: 64 Year
  Sex: Male

DRUGS (3)
  1. LANTUS [Suspect]
     Indication: TYPE 1 DIABETES MELLITUS
     Dosage: 70 U, QD
     Route: 058
  2. LISINOPRIL [Concomitant]
     Indication: HYPERTENSION
     Route: 048
  3. NOVOLOG [Suspect]
     Indication: TYPE 1 DIABETES MELLITUS
     Dosage: 10 U, TID
     Route: 058
     Dates: start: 20020101

REACTIONS (6)
  - VIITH NERVE PARALYSIS [None]
  - CENTRAL NERVOUS SYSTEM LESION [None]
  - GAIT DISTURBANCE [None]
  - DIABETIC COMA [None]
  - HYPERTENSION [None]
  - DIPLOPIA [None]
